FAERS Safety Report 10025343 (Version 2)
Quarter: 2014Q1

REPORT INFORMATION
  Report Type: Spontaneous
  Country: US (occurrence: US)
  Receive Date: 20140320
  Receipt Date: 20140331
  Transmission Date: 20141002
  Serious: Yes (Hospitalization)
  Sender: FDA-Public Use
  Company Number: US-BAYER-2014-041457

PATIENT
  Age: 43 Year
  Sex: Female

DRUGS (5)
  1. YAZ [Suspect]
     Indication: ACNE
     Dosage: UNK
  2. YASMIN [Suspect]
     Indication: ACNE
     Dosage: UNK
     Dates: start: 20110414, end: 20110530
  3. SAFYRAL [Suspect]
     Indication: ACNE
     Dosage: UNK
     Dates: start: 20110414, end: 20110530
  4. OCELLA [Suspect]
     Indication: ACNE
  5. LYRICA [Concomitant]

REACTIONS (4)
  - Injury [None]
  - Pulmonary embolism [None]
  - Pain [None]
  - Pain [None]
